FAERS Safety Report 24154871 (Version 1)
Quarter: 2024Q3

REPORT INFORMATION
  Report Type: Spontaneous
  Country: US (occurrence: US)
  Receive Date: 20240731
  Receipt Date: 20240731
  Transmission Date: 20241017
  Serious: Yes (Hospitalization)
  Sender: PACIRA
  Company Number: US-ORG100016242-2024000494

PATIENT

DRUGS (1)
  1. BUPIVACAINE [Suspect]
     Active Substance: BUPIVACAINE
     Indication: Shoulder arthroplasty
     Dosage: SINGLE SHOT
     Route: 050

REACTIONS (3)
  - Hospitalisation [Unknown]
  - Emergency care [Unknown]
  - Pain [Unknown]
